FAERS Safety Report 20609083 (Version 1)
Quarter: 2022Q1

REPORT INFORMATION
  Report Type: Spontaneous
  Country: IL (occurrence: IL)
  Receive Date: 20220317
  Receipt Date: 20220317
  Transmission Date: 20220423
  Serious: Yes (Hospitalization)
  Sender: FDA-Public Use
  Company Number: IL-PFIZER INC-202200408859

PATIENT
  Age: 49 Year
  Sex: Male

DRUGS (7)
  1. PAXLOVID [Suspect]
     Active Substance: NIRMATRELVIR\RITONAVIR
     Indication: COVID-19
     Dosage: 2X2
     Dates: start: 20220125
  2. PREDNISONE [Concomitant]
     Active Substance: PREDNISONE
     Dosage: 5 MG
  3. CALCIUM\VITAMIN D [Concomitant]
     Active Substance: CALCIUM\VITAMIN D
     Dosage: UNK
  4. CELLCEPT [Concomitant]
     Active Substance: MYCOPHENOLATE MOFETIL
     Dosage: 250 MG
  5. RAMIPRIL [Concomitant]
     Active Substance: RAMIPRIL
     Dosage: 1.25 MG
  6. VITAMIN D3 [Concomitant]
     Active Substance: CHOLECALCIFEROL
     Dosage: UNK
  7. PROGRAF [Concomitant]
     Active Substance: TACROLIMUS
     Dosage: 1 MG

REACTIONS (7)
  - Diarrhoea [Recovered/Resolved]
  - Renal impairment [Unknown]
  - Decreased appetite [Recovered/Resolved]
  - Rectal haemorrhage [Unknown]
  - Haemorrhoids thrombosed [Unknown]
  - Blood creatinine increased [Unknown]
  - Drug level increased [Unknown]
